FAERS Safety Report 20441319 (Version 5)
Quarter: 2023Q4

REPORT INFORMATION
  Report Type: Spontaneous
  Country: US (occurrence: US)
  Receive Date: 20220208
  Receipt Date: 20231123
  Transmission Date: 20240109
  Serious: No
  Sender: FDA-Public Use
  Company Number: US-TAKEDA-2022TUS006995

PATIENT
  Sex: Female

DRUGS (1)
  1. ENTYVIO [Suspect]
     Active Substance: VEDOLIZUMAB
     Indication: Crohn^s disease
     Dosage: UNK UNK, Q6WEEKS
     Route: 042
     Dates: start: 201412

REACTIONS (7)
  - COVID-19 [Not Recovered/Not Resolved]
  - Off label use [Unknown]
  - Somnolence [Recovering/Resolving]
  - Infusion related reaction [Recovering/Resolving]
  - Chills [Unknown]
  - Headache [Unknown]
  - Nasopharyngitis [Unknown]
